FAERS Safety Report 6299969-2 (Version None)
Quarter: 2009Q3

REPORT INFORMATION
  Report Type: 
  Country: None (occurrence: None)
  Receive Date: 20090806
  Receipt Date: 20090803
  Transmission Date: 20100115
  Serious: Yes (Other)
  Sender: FDA-Public Use
  Company Number: US-WYE-H10432009

PATIENT
  Sex: Male

DRUGS (5)
  1. TORISEL [Suspect]
     Indication: RENAL CELL CARCINOMA
     Route: 042
     Dates: start: 20090701
  2. ARIXTRA [Concomitant]
  3. VITAMINS NOS [Concomitant]
  4. METOPROLOL SUCCINATE [Concomitant]
  5. DOCUSATE SODIUM [Concomitant]

REACTIONS (6)
  - BACK PAIN [None]
  - DYSPNOEA [None]
  - ERYTHEMA [None]
  - HYPOTENSION [None]
  - HYPOXIA [None]
  - INFUSION RELATED REACTION [None]
